FAERS Safety Report 4649569-2 (Version None)
Quarter: 2005Q2

REPORT INFORMATION
  Report Type: 
  Country: None (occurrence: None)
  Receive Date: 20050502
  Receipt Date: 20050425
  Transmission Date: 20051028
  Serious: Yes (Other)
  Sender: FDA-Public Use
  Company Number: PHFR2005GB01629

PATIENT
  Age: 51 Year
  Sex: Male

DRUGS (3)
  1. AMOXICILLIN [Concomitant]
     Indication: INFECTION
     Dosage: 500MG/DAY
     Route: 048
     Dates: start: 20050121, end: 20050126
  2. TRAMADOL HCL [Concomitant]
     Indication: BACK PAIN
     Dosage: 50-100MG/DAY
     Route: 048
     Dates: start: 20050318
  3. LAMISIL [Suspect]
     Indication: ONYCHOMYCOSIS
     Dosage: 250MG/DAY
     Route: 048
     Dates: start: 20050121, end: 20050316

REACTIONS (3)
  - HAEMOGLOBIN ABNORMAL [None]
  - HYPOCHROMIC ANAEMIA [None]
  - PALLOR [None]
